FAERS Safety Report 12861489 (Version 3)
Quarter: 2018Q2

REPORT INFORMATION
  Report Type: Report from Study
  Country: US (occurrence: US)
  Receive Date: 20161019
  Receipt Date: 20180601
  Transmission Date: 20180711
  Serious: No
  Sender: FDA-Public Use
  Company Number: PHEH2015US001389

PATIENT
  Sex: Female

DRUGS (1)
  1. GILENYA [Suspect]
     Active Substance: FINGOLIMOD HYDROCHLORIDE
     Indication: RELAPSING-REMITTING MULTIPLE SCLEROSIS
     Dosage: 0.5 MG, QD
     Route: 048
     Dates: start: 20120301

REACTIONS (6)
  - Joint injury [Unknown]
  - Respiratory disorder [Recovering/Resolving]
  - Motion sickness [Unknown]
  - Stress [Unknown]
  - Gait disturbance [Unknown]
  - Bronchitis [Recovering/Resolving]
